FAERS Safety Report 15179122 (Version 1)
Quarter: 2018Q3

REPORT INFORMATION
  Report Type: Spontaneous
  Country: FR (occurrence: FR)
  Receive Date: 20180723
  Receipt Date: 20180723
  Transmission Date: 20181010
  Serious: Yes (Other)
  Sender: FDA-Public Use
  Company Number: FR-TEVA-2018-FR-926714

PATIENT
  Sex: Female

DRUGS (4)
  1. GRANOCYTE [Concomitant]
     Active Substance: LENOGRASTIM
  2. CYCLOPHOSPHAMIDE. [Concomitant]
     Active Substance: CYCLOPHOSPHAMIDE
     Route: 065
  3. EPIRUBICIN [Suspect]
     Active Substance: EPIRUBICIN
     Dosage: EVERY 2 WEEKS (PROTOCOL EPIRUBICIN?CYCLOPHOSPHAMIDE, SCHEDULED FOR 4 CYCLES
     Route: 065
  4. NEULASTA [Concomitant]
     Active Substance: PEGFILGRASTIM
     Route: 065

REACTIONS (5)
  - Insomnia [Unknown]
  - Oxygen saturation decreased [Unknown]
  - Cardiac disorder [Unknown]
  - Myalgia [Unknown]
  - Arthralgia [Unknown]
